FAERS Safety Report 9523668 (Version 2)
Quarter: 2013Q3

REPORT INFORMATION
  Report Type: Report from Study
  Country: JP (occurrence: JP)
  Receive Date: 20130913
  Receipt Date: 20130913
  Transmission Date: 20140515
  Serious: Yes (Hospitalization, Other)
  Sender: FDA-Public Use
  Company Number: JP-009507513-2009SP008141

PATIENT
  Age: 50 Year
  Sex: Female
  Weight: 47.4 kg

DRUGS (16)
  1. MK-8908A [Suspect]
     Indication: CHRONIC HEPATITIS C
     Dosage: 600 MG, QD
     Route: 048
     Dates: start: 20090304, end: 20090320
  2. MK-8908A [Suspect]
     Dosage: 400 MG, QD
     Route: 048
     Dates: start: 20090321, end: 20090323
  3. MK-8908A [Suspect]
     Dosage: 200 MG, QD
     Route: 048
     Dates: start: 20090324, end: 20090416
  4. REBETOL [Suspect]
     Indication: CHRONIC HEPATITIS C
     Dosage: 200-600 MG/DOSE; DAILY DOSE, 600-1000 MG AFTER MEALS B.I.D.
     Route: 048
  5. PEGINTRON [Suspect]
     Indication: CHRONIC HEPATITIS C
     Dosage: 80 ?G, QW
     Route: 058
     Dates: start: 20090304, end: 20090414
  6. PEGINTRON [Suspect]
     Dosage: 1.5 UG/KG; RANGE, 1250-1739 UG/KG ONCE A WEEK
     Route: 058
  7. TELAPREVIR [Suspect]
     Indication: CHRONIC HEPATITIS C
     Dosage: 2250 MG, QD
     Route: 048
     Dates: start: 20090304, end: 20090416
  8. TELAPREVIR [Suspect]
     Dosage: 750 MG, TID X 8 H AFTER MEALS
     Route: 048
  9. LOXONIN [Suspect]
     Indication: PYREXIA
     Dosage: 60 MG, PRN
     Route: 048
     Dates: start: 20090303, end: 20090420
  10. LOXONIN [Suspect]
     Indication: PAIN
  11. URSO [Concomitant]
     Indication: CHRONIC HEPATITIS C
     Dosage: 200 MG, TID
     Route: 048
     Dates: start: 200801, end: 20090416
  12. MUCOSTA [Concomitant]
     Indication: PYREXIA
     Dosage: INDICATION ALSO FOR PAIN
     Route: 048
     Dates: start: 20090310, end: 20090420
  13. FERROMIA [Concomitant]
     Indication: HAEMOGLOBIN DECREASED
     Dosage: 940 MG, QD
     Route: 048
     Dates: start: 20090407, end: 20090416
  14. NERISONA [Concomitant]
     Indication: RASH
     Dosage: UNK UNK, PRN
     Route: 061
     Dates: start: 20090312, end: 20090515
  15. HIRUDOID [Concomitant]
     Indication: DRY SKIN
     Dosage: UNK UNK, PRN
     Route: 061
     Dates: start: 20090312
  16. ALLELOCK [Concomitant]
     Indication: RASH
     Dosage: 5 MG, BID
     Route: 048
     Dates: start: 20090414, end: 20090530

REACTIONS (1)
  - Stevens-Johnson syndrome [Recovered/Resolved]
